FAERS Safety Report 8495993-X (Version None)
Quarter: 2012Q3

REPORT INFORMATION
  Report Type: 
  Country: None (occurrence: None)
  Receive Date: 20120709
  Receipt Date: 20120628
  Transmission Date: 20120928
  Serious: Yes (Hospitalization)
  Sender: FDA-Public Use
  Company Number: RU-ROCHE-728742

PATIENT
  Sex: Male
  Weight: 73 kg

DRUGS (6)
  1. TEMSIROLIMUS [Suspect]
     Indication: RENAL CANCER
     Dosage: FREQUENCY: EVERY WEEK.
     Route: 042
  2. AVASTIN [Suspect]
     Indication: RENAL CANCER
     Dosage: FREQUENCY: EVERY OTHER WEEK.
     Route: 042
     Dates: start: 20100611, end: 20100909
  3. METOPROLOL [Concomitant]
     Indication: HYPERTENSION
  4. ENALAPRIL MALEATE [Concomitant]
     Indication: HYPERTENSION
  5. TEMSIROLIMUS [Suspect]
     Dosage: FREQUENCY: EVERY WEEK.
     Route: 042
     Dates: start: 20100611, end: 20100909
  6. TEMSIROLIMUS [Suspect]
     Route: 042

REACTIONS (1)
  - OSTEOMYELITIS [None]
